FAERS Safety Report 4263651-3 (Version None)
Quarter: 2004Q1

REPORT INFORMATION
  Report Type: 
  Country: None (occurrence: None)
  Receive Date: 20040102
  Receipt Date: 20031222
  Transmission Date: 20041129
  Serious: Yes (Other)
  Sender: FDA-Public Use
  Company Number: ZONI001284

PATIENT
  Age: 13 Year
  Sex: Male

DRUGS (3)
  1. ZONISAMIDE (ZONISAMIDE) [Suspect]
     Indication: EPILEPSY
     Dosage: 130 MG DAILY ORAL
     Route: 048
  2. CLOBAZAM (CLOBAZAM) [Suspect]
     Indication: EPILEPSY
     Dosage: 6 MG DAILY
  3. NITRAZEPAM [Concomitant]

REACTIONS (4)
  - CEREBRAL ATROPHY [None]
  - CONVULSION [None]
  - NUCLEAR MAGNETIC RESONANCE IMAGING BRAIN ABNORMAL [None]
  - SLEEP DISORDER [None]
